FAERS Safety Report 9344973 (Version 1)
Quarter: 2013Q2

REPORT INFORMATION
  Report Type: Spontaneous
  Country: US (occurrence: US)
  Receive Date: 20130612
  Receipt Date: 20130612
  Transmission Date: 20140414
  Serious: Yes (Hospitalization)
  Sender: FDA-Public Use
  Company Number: US-BAYER-2013-071546

PATIENT
  Age: 51 Year
  Sex: Male

DRUGS (1)
  1. MAGNEVIST [Suspect]
     Indication: NUCLEAR MAGNETIC RESONANCE IMAGING BRAIN
     Dosage: 20 ML, UNK
     Route: 042
     Dates: start: 20130606, end: 20130606

REACTIONS (2)
  - Pharyngeal oedema [None]
  - Dyspnoea [None]
